FAERS Safety Report 4323638-9 (Version None)
Quarter: 2004Q1

REPORT INFORMATION
  Report Type: 
  Country: None (occurrence: None)
  Receive Date: 20040326
  Receipt Date: 20040310
  Transmission Date: 20041129
  Serious: Yes (Hospitalization)
  Sender: FDA-Public Use
  Company Number: PHBS2004JP03399

PATIENT
  Age: 64 Year
  Sex: Male

DRUGS (3)
  1. ANAFRANIL [Suspect]
     Indication: MAJOR DEPRESSION
  2. MAPROTILINE HYDROCHLORIDE [Suspect]
     Indication: MAJOR DEPRESSION
     Dosage: 30 MG/D
     Route: 048
  3. SULPIRIDE [Concomitant]
     Dosage: 150 MG/D
     Route: 065

REACTIONS (15)
  - ABNORMAL BEHAVIOUR [None]
  - AKINESIA [None]
  - ANXIETY [None]
  - DEPRESSION [None]
  - DISTURBANCE IN ATTENTION [None]
  - ELECTROENCEPHALOGRAM ABNORMAL [None]
  - HEADACHE [None]
  - MUTISM [None]
  - ORTHOSTATIC HYPOTENSION [None]
  - PETIT MAL EPILEPSY [None]
  - SPEECH DISORDER [None]
  - STATUS EPILEPTICUS [None]
  - TINNITUS [None]
  - TREATMENT NONCOMPLIANCE [None]
  - TREMOR [None]
